FAERS Safety Report 9855392 (Version 1)
Quarter: 2014Q1

REPORT INFORMATION
  Report Type: Spontaneous
  Country: US (occurrence: US)
  Receive Date: 20140130
  Receipt Date: 20140130
  Transmission Date: 20141002
  Serious: Yes (Hospitalization)
  Sender: FDA-Public Use
  Company Number: US-B.I. PHARMACEUTICALS,INC./RIDGEFIELD-2014-BI-03041BP

PATIENT
  Age: 51 Year
  Sex: Female
  Weight: 64 kg

DRUGS (11)
  1. SPIRIVA [Suspect]
     Indication: CHRONIC OBSTRUCTIVE PULMONARY DISEASE
     Dosage: 18 MCG
     Route: 055
     Dates: start: 201302
  2. ADVAIR [Concomitant]
     Indication: CHRONIC OBSTRUCTIVE PULMONARY DISEASE
     Route: 055
  3. PREDNISONE [Concomitant]
     Indication: CHRONIC OBSTRUCTIVE PULMONARY DISEASE
     Dosage: 10 MG
     Route: 048
  4. KLONOPIN [Concomitant]
     Indication: ANXIETY
     Dosage: 5 MG
     Route: 048
  5. BUSPIRONE [Concomitant]
     Indication: ANXIETY
     Dosage: 5 MG
     Route: 048
  6. ZYRTEC [Concomitant]
     Indication: HYPERSENSITIVITY
     Dosage: 10 MG
     Route: 048
  7. FLONASE [Concomitant]
     Indication: HYPERSENSITIVITY
     Dosage: 50 MCG
     Route: 045
  8. PROAIR [Concomitant]
     Indication: DYSPNOEA
     Route: 055
  9. MUCINEX [Concomitant]
     Indication: LUNG DISORDER
     Route: 048
  10. SINGULAIR [Concomitant]
     Indication: ASTHMA
     Dosage: 10 MG
     Route: 048
  11. IPRATROPIUM/ALBUTEROL NEBS [Concomitant]
     Indication: DYSPNOEA
     Route: 055

REACTIONS (4)
  - Dyspnoea [Recovered/Resolved]
  - Dyspnoea [Not Recovered/Not Resolved]
  - Gastric ulcer haemorrhage [Not Recovered/Not Resolved]
  - Dyspepsia [Not Recovered/Not Resolved]
